FAERS Safety Report 8772496 (Version 2)
Quarter: 2012Q4

REPORT INFORMATION
  Report Type: 
  Country: US (occurrence: US)
  Receive Date: 20120905
  Receipt Date: 20120905
  Transmission Date: 20130627
  Serious: No
  Sender: FDA-Public Use
  Company Number: US-009507513-1208USA000956

PATIENT

DRUGS (4)
  1. MIRALAX [Suspect]
     Indication: ABDOMINAL PAIN UPPER
     Dosage: UNK, Unknown
     Route: 048
     Dates: start: 20120620, end: 20120715
  2. MIRALAX [Suspect]
     Indication: MEDICAL OBSERVATION
  3. MIRALAX [Suspect]
     Indication: CONSTIPATION
  4. LEVOTHYROXINE SODIUM [Concomitant]
     Indication: HYPOTHYROIDISM
     Dosage: UNK, Unknown

REACTIONS (2)
  - Drug ineffective [Unknown]
  - Diarrhoea [Recovering/Resolving]
